FAERS Safety Report 9272685 (Version 1)
Quarter: 2013Q2

REPORT INFORMATION
  Report Type: Spontaneous
  Country: TR (occurrence: TR)
  Receive Date: 20130506
  Receipt Date: 20130506
  Transmission Date: 20140414
  Serious: Yes (Hospitalization)
  Sender: FDA-Public Use
  Company Number: TR-AMGEN-TURSP2013007705

PATIENT
  Age: 44 Year
  Sex: Female

DRUGS (1)
  1. ENBREL [Suspect]
     Indication: ANKYLOSING SPONDYLITIS
     Dosage: 50 MG, WEEKLY
     Route: 058
     Dates: start: 20110721, end: 201302

REACTIONS (5)
  - Meniscus injury [Unknown]
  - Drug ineffective [Unknown]
  - Hypersensitivity [Unknown]
  - Generalised erythema [Unknown]
  - Oedema peripheral [Unknown]
